FAERS Safety Report 6307011-X (Version None)
Quarter: 2009Q3

REPORT INFORMATION
  Report Type: 
  Country: None (occurrence: None)
  Receive Date: 20090812
  Receipt Date: 20090805
  Transmission Date: 20100115
  Serious: Yes (Congenital Anomaly, Other)
  Sender: FDA-Public Use
  Company Number: CH-ABBOTT-09P-151-0589604-00

PATIENT
  Sex: Female
  Weight: 3.2 kg

DRUGS (5)
  1. KLACID TABLETS [Suspect]
     Indication: DRUG EXPOSURE DURING PREGNANCY
     Route: 064
  2. OMEPRAZOLE [Suspect]
     Indication: DRUG EXPOSURE DURING PREGNANCY
     Route: 064
  3. FLAGYL [Suspect]
     Indication: DRUG EXPOSURE DURING PREGNANCY
     Route: 064
  4. INSULIN ASPART [Suspect]
     Indication: DRUG EXPOSURE DURING PREGNANCY
     Route: 064
  5. INSULIN HUMAN [Suspect]
     Indication: DRUG EXPOSURE DURING PREGNANCY
     Route: 064

REACTIONS (5)
  - DRUG EXPOSURE DURING PREGNANCY [None]
  - HYPERBILIRUBINAEMIA [None]
  - MACROCEPHALY [None]
  - MACROSOMIA [None]
  - PREMATURE BABY [None]
